FAERS Safety Report 17109610 (Version 1)
Quarter: 2019Q4

REPORT INFORMATION
  Report Type: Spontaneous
  Country: US (occurrence: US)
  Receive Date: 20191204
  Receipt Date: 20191204
  Transmission Date: 20200122
  Serious: Yes (Other)
  Sender: FDA-Public Use
  Company Number: US-ABBVIE-19K-163-3177513-00

PATIENT
  Age: 28 Year
  Sex: Female
  Weight: 81.72 kg

DRUGS (5)
  1. KLONOPIN [Concomitant]
     Active Substance: CLONAZEPAM
     Indication: PRODUCT USED FOR UNKNOWN INDICATION
  2. ORILISSA [Suspect]
     Active Substance: ELAGOLIX SODIUM
     Route: 048
     Dates: start: 201909
  3. ORILISSA [Suspect]
     Active Substance: ELAGOLIX SODIUM
     Indication: ENDOMETRIOSIS
     Route: 048
  4. TOPAMAX [Concomitant]
     Active Substance: TOPIRAMATE
     Indication: PRODUCT USED FOR UNKNOWN INDICATION
  5. VITAMINS [Concomitant]
     Active Substance: VITAMINS
     Indication: PRODUCT USED FOR UNKNOWN INDICATION

REACTIONS (8)
  - Migraine [Unknown]
  - Pain [Not Recovered/Not Resolved]
  - Fallopian tube perforation [Unknown]
  - Endosalpingiosis [Unknown]
  - Pelvic adhesions [Unknown]
  - Therapeutic product effect decreased [Unknown]
  - Surgery [Unknown]
  - Vasodilatation [Unknown]

NARRATIVE: CASE EVENT DATE: 2019
